FAERS Safety Report 9700555 (Version 6)
Quarter: 2014Q1

REPORT INFORMATION
  Report Type: Report from Study
  Country: DE (occurrence: DE)
  Receive Date: 20131121
  Receipt Date: 20140224
  Transmission Date: 20141002
  Serious: Yes (Death)
  Sender: FDA-Public Use
  Company Number: PHHY2013DE131768

PATIENT
  Sex: Female
  Weight: 68 kg

DRUGS (2)
  1. FTY 720 [Suspect]
     Indication: MULTIPLE SCLEROSIS
     Dosage: 0.5 MG, QD
     Route: 048
     Dates: start: 20111018, end: 20131128
  2. FAMPYRA [Concomitant]
     Indication: GAIT DISTURBANCE
     Dosage: 20 MG, QD
     Route: 048
     Dates: start: 20120808, end: 20130901

REACTIONS (14)
  - Pancreatic carcinoma [Fatal]
  - Metastases to liver [Fatal]
  - Weight decreased [Fatal]
  - Food intolerance [Fatal]
  - Abdominal pain upper [Fatal]
  - Constipation [Fatal]
  - Oedema peripheral [Fatal]
  - Malaise [Fatal]
  - Inflammation [Fatal]
  - Hepatic enzyme increased [Fatal]
  - Gamma-glutamyltransferase increased [Fatal]
  - Hypoalbuminaemia [Fatal]
  - Hypokalaemia [Fatal]
  - Ascites [Unknown]
